FAERS Safety Report 25826265 (Version 1)
Quarter: 2025Q3

REPORT INFORMATION
  Report Type: Spontaneous
  Country: GB (occurrence: GB)
  Receive Date: 20250919
  Receipt Date: 20250919
  Transmission Date: 20251021
  Serious: Yes (Life-Threatening, Hospitalization, Other)
  Sender: ABBVIE
  Company Number: None

PATIENT
  Age: 56 Year
  Sex: Male
  Weight: 93 kg

DRUGS (1)
  1. RISANKIZUMAB [Suspect]
     Active Substance: RISANKIZUMAB
     Indication: Inflammatory bowel disease
     Dosage: 2.4ML EVERY 8 WEEKS BY SC INJECTION
     Route: 058
     Dates: start: 20241231, end: 20250827

REACTIONS (8)
  - Liver injury [Recovering/Resolving]
  - Thrombosis [Recovering/Resolving]
  - Crohn^s disease [Unknown]
  - Rectal haemorrhage [Recovered/Resolved]
  - Malaise [Unknown]
  - Disease risk factor [Unknown]
  - Rectal haemorrhage [Unknown]
  - Haemorrhage [Unknown]

NARRATIVE: CASE EVENT DATE: 20250101
